FAERS Safety Report 8451249-2 (Version None)
Quarter: 2012Q2

REPORT INFORMATION
  Report Type: 
  Country: None (occurrence: None)
  Receive Date: 20120620
  Receipt Date: 20120228
  Transmission Date: 20120825
  Serious: No
  Sender: FDA-Public Use
  Company Number: US-VERTEX PHARMACEUTICALS INC.-AE-2012-001690

PATIENT
  Sex: Female
  Weight: 58.112 kg

DRUGS (4)
  1. INCIVEK [Suspect]
     Indication: HEPATITIS C
     Route: 048
     Dates: start: 20120104
  2. RIBAVIRIN [Concomitant]
     Indication: HEPATITIS C
     Route: 048
     Dates: start: 20120103
  3. XANAX [Concomitant]
     Route: 048
  4. PEGASYS [Concomitant]
     Indication: HEPATITIS C
     Route: 058
     Dates: start: 20120103

REACTIONS (8)
  - INFLUENZA LIKE ILLNESS [None]
  - PAIN OF SKIN [None]
  - SOMNOLENCE [None]
  - ASTHENIA [None]
  - HEADACHE [None]
  - INAPPROPRIATE SCHEDULE OF DRUG ADMINISTRATION [None]
  - MYALGIA [None]
  - DRY SKIN [None]
